FAERS Safety Report 20336840 (Version 2)
Quarter: 2022Q1

REPORT INFORMATION
  Report Type: Report from Study
  Country: BR (occurrence: BR)
  Receive Date: 20220114
  Receipt Date: 20220120
  Transmission Date: 20220424
  Serious: Yes (Other)
  Sender: FDA-Public Use
  Company Number: BR-NOVARTISPH-NVSC2022BR006825

PATIENT
  Age: 58 Year
  Sex: Male

DRUGS (4)
  1. COSENTYX [Suspect]
     Active Substance: SECUKINUMAB
     Indication: Ankylosing spondylitis
     Dosage: UNK
     Route: 058
     Dates: start: 20211129
  2. COSENTYX [Suspect]
     Active Substance: SECUKINUMAB
     Dosage: 150 MG, QMO (WEEK 0,1,2,3 AND 4)
     Route: 058
     Dates: start: 20211203, end: 20211231
  3. COSENTYX [Suspect]
     Active Substance: SECUKINUMAB
     Dosage: UNK
     Route: 065
  4. ISONIAZID [Concomitant]
     Active Substance: ISONIAZID
     Indication: Latent tuberculosis
     Dosage: UNK
     Route: 065

REACTIONS (10)
  - Dislocation of vertebra [Unknown]
  - Spondylolisthesis [Unknown]
  - Immune system disorder [Unknown]
  - Spinal pain [Unknown]
  - Vision blurred [Recovered/Resolved]
  - Vision blurred [Recovered/Resolved]
  - Pain in extremity [Unknown]
  - Therapeutic product effect incomplete [Not Recovered/Not Resolved]
  - Therapeutic product effect delayed [Unknown]
  - Drug ineffective [Unknown]

NARRATIVE: CASE EVENT DATE: 20220105
